FAERS Safety Report 23263260 (Version 6)
Quarter: 2025Q3

REPORT INFORMATION
  Report Type: Spontaneous
  Country: US (occurrence: US)
  Receive Date: 20231205
  Receipt Date: 20250707
  Transmission Date: 20251021
  Serious: No
  Sender: PFIZER
  Company Number: US-PFIZER INC-202300414270

PATIENT
  Age: 8 Year
  Sex: Female

DRUGS (2)
  1. GENOTROPIN [Suspect]
     Active Substance: SOMATROPIN
     Indication: Blood growth hormone
     Dosage: 1MG ONE DAY AND 0.8MG THE NEXT DAY TO MAKE 0.9MG; EVERY DAY, NIGHTLY
     Dates: start: 20231124, end: 20231217
  2. GENOTROPIN [Suspect]
     Active Substance: SOMATROPIN
     Indication: Body height below normal

REACTIONS (4)
  - Product dispensing error [Unknown]
  - Expired product administered [Unknown]
  - Influenza [Unknown]
  - Device use error [Unknown]

NARRATIVE: CASE EVENT DATE: 20231101
